FAERS Safety Report 4739151-0 (Version None)
Quarter: 2005Q3

REPORT INFORMATION
  Report Type: 
  Country: None (occurrence: None)
  Receive Date: 20050810
  Receipt Date: 20050427
  Transmission Date: 20060218
  Serious: No
  Sender: FDA-Public Use
  Company Number: US-GLAXOSMITHKLINE-A0556057A

PATIENT
  Sex: Female

DRUGS (3)
  1. PAXIL CR [Suspect]
     Indication: DEPRESSION
     Dosage: 25MG PER DAY
     Route: 048
     Dates: end: 20050301
  2. PAXIL [Suspect]
     Indication: DEPRESSION
     Route: 048
     Dates: start: 19950101
  3. SEROQUEL [Suspect]
     Dosage: 100MG PER DAY
     Route: 048
     Dates: start: 20050201, end: 20050401

REACTIONS (4)
  - CRYING [None]
  - DIZZINESS [None]
  - IRRITABILITY [None]
  - MEMORY IMPAIRMENT [None]
